FAERS Safety Report 9553961 (Version 1)
Quarter: 2013Q3

REPORT INFORMATION
  Report Type: Spontaneous
  Country: GB (occurrence: GB)
  Receive Date: 20130925
  Receipt Date: 20130925
  Transmission Date: 20140515
  Serious: Yes (Hospitalization, Other)
  Sender: FDA-Public Use
  Company Number: GB-TEVA-433188ISR

PATIENT
  Age: 67 Year
  Sex: Female

DRUGS (20)
  1. LEVOFLOXACIN [Suspect]
     Indication: CELLULITIS
     Route: 048
     Dates: start: 201210, end: 20121029
  2. ERYTHROMYCIN [Suspect]
     Indication: CELLULITIS
     Dosage: 2000 MILLIGRAM DAILY;
     Route: 048
     Dates: start: 201210
  3. LISINOPRIL [Concomitant]
     Dosage: 15 MILLIGRAM DAILY;
  4. METFORMIN [Concomitant]
     Dosage: 2 GRAM DAILY;
  5. PROPANTHELINE [Concomitant]
     Dosage: 90 MILLIGRAM DAILY;
  6. PYRIDOSTIGMINE [Concomitant]
     Dosage: 90 MILLIGRAM DAILY;
  7. SPIRONOLACTONE [Concomitant]
     Dosage: 25 MILLIGRAM DAILY;
  8. AMLODIPINE [Concomitant]
     Dosage: 10 MILLIGRAM DAILY;
  9. CITALOPRAM [Concomitant]
     Dosage: 20 MILLIGRAM DAILY;
  10. FOLIC ACID [Concomitant]
     Dosage: 5 MILLIGRAM DAILY; EXCEPT SUNDAYS
  11. FUROSEMIDE [Concomitant]
     Dosage: 80 MILLIGRAM DAILY; IN THE MORNING
  12. WARFARIN [Concomitant]
     Indication: DEEP VEIN THROMBOSIS
  13. PREDNISOLONE [Concomitant]
     Dosage: 4 MILLIGRAM DAILY; IN THE MORNING
  14. ALENDRONIC ACID [Concomitant]
     Dosage: 10 MILLIGRAM DAILY;
  15. METHOTREXATE [Concomitant]
     Dosage: ON SUNDAYS
  16. NOVORAPID [Concomitant]
  17. LANTUS [Concomitant]
  18. EXENATIDE [Concomitant]
     Dosage: 20 MICROGRAM DAILY;
  19. AMITRIPTYLINE HYDROCHLORIDE [Concomitant]
     Dosage: 75 MILLIGRAM DAILY; AT NIGHT
  20. ATORVASTATIN [Concomitant]
     Dosage: AT NIGHT

REACTIONS (6)
  - Treatment failure [Unknown]
  - Pyrexia [Recovered/Resolved]
  - Tenderness [Recovered/Resolved]
  - Malaise [Recovered/Resolved]
  - Local swelling [Recovered/Resolved with Sequelae]
  - Erythema [Recovered/Resolved with Sequelae]
